FAERS Safety Report 21711225 (Version 2)
Quarter: 2022Q4

REPORT INFORMATION
  Report Type: Report from Study
  Country: PR (occurrence: PR)
  Receive Date: 20221212
  Receipt Date: 20221216
  Transmission Date: 20230112
  Serious: No
  Sender: FDA-Public Use
  Company Number: PR-ABBVIE-4231961

PATIENT
  Sex: Female
  Weight: 50 kg

DRUGS (1)
  1. VENCLEXTA [Suspect]
     Active Substance: VENETOCLAX
     Indication: Acute myeloid leukaemia
     Dosage: EVENT CESSATION DATE SHOULD BE AT LEAST 2022.
     Route: 048
     Dates: start: 20220728

REACTIONS (2)
  - White blood cell count decreased [Unknown]
  - Oral herpes [Unknown]
